FAERS Safety Report 6909469-1 (Version None)
Quarter: 2010Q3

REPORT INFORMATION
  Report Type: 
  Country: None (occurrence: None)
  Receive Date: 20100805
  Receipt Date: 20100726
  Transmission Date: 20110219
  Serious: Yes (Hospitalization)
  Sender: FDA-Public Use
  Company Number: CZ-ABBOTT-10P-217-0659846-00

PATIENT
  Age: 42 Year
  Sex: Male

DRUGS (5)
  1. KLACID [Suspect]
     Indication: BRONCHOPNEUMONIA
     Route: 048
     Dates: start: 20100423, end: 20100504
  2. EMZOK [Concomitant]
     Indication: HYPERTENSION
     Route: 048
     Dates: start: 20030101
  3. TENAXUM [Concomitant]
     Indication: HYPERTENSION
     Route: 048
     Dates: start: 20040101
  4. FELODIPINE [Concomitant]
     Indication: HYPERTENSION
     Route: 048
     Dates: start: 20040101
  5. NOLPAZA [Concomitant]
     Indication: PRODUCT USED FOR UNKNOWN INDICATION
     Route: 048

REACTIONS (1)
  - BRONCHOPNEUMONIA [None]
